FAERS Safety Report 24086703 (Version 1)
Quarter: 2024Q3

REPORT INFORMATION
  Report Type: Report from Study
  Country: ZA (occurrence: ZA)
  Receive Date: 20240713
  Receipt Date: 20240713
  Transmission Date: 20241017
  Serious: Yes (Other)
  Sender: ABBVIE
  Company Number: ZA-ABBOTT-2024A-1384040

PATIENT
  Age: 50 Year
  Sex: Female

DRUGS (10)
  1. CREON [Suspect]
     Active Substance: PANCRELIPASE AMYLASE\PANCRELIPASE LIPASE\PANCRELIPASE PROTEASE
     Indication: Pancreatic failure
     Dosage: 150 MG TAKE ONE CAPSULE THREE TIMES DAILY, 10000
     Route: 048
  2. FOLIC ACID [Concomitant]
     Active Substance: FOLIC ACID
     Indication: Coronary artery disease
     Dosage: 5 MG TAKE ONE TABLET DAILY
     Route: 048
  3. MIRTAZAPINE [Concomitant]
     Active Substance: MIRTAZAPINE
     Indication: Depression
     Dosage: 15 MG TAKE ONE TABLET AT NIGHT
     Route: 048
  4. MIRTAZAPINE [Concomitant]
     Active Substance: MIRTAZAPINE
     Indication: Depression
     Dosage: 30 MG TAKE ONE TABLET AT BEDTIME
     Route: 048
  5. ANGELIQ [Concomitant]
     Active Substance: DROSPIRENONE\ESTRADIOL
     Indication: Hormone replacement therapy
     Dosage: TAKE ONE TABLET DAILY
     Route: 048
  6. TRAZODONE HYDROCHLORIDE [Concomitant]
     Active Substance: TRAZODONE HYDROCHLORIDE
     Indication: Depression
     Dosage: 100 MG TAKE ONE CAPSULE AT NIGHT
     Route: 048
  7. TRAZODONE HYDROCHLORIDE [Concomitant]
     Active Substance: TRAZODONE HYDROCHLORIDE
     Indication: Depression
     Dosage: 50 MG TAKE ONE CAPSULE AT BEDTIME
     Route: 048
  8. Serdep [Concomitant]
     Indication: Mental disorder
     Dosage: 50 MG TAKE ONE TABLET DAILY
     Route: 048
  9. BUTYLSCOPOLAMINE BROMIDE [Concomitant]
     Active Substance: BUTYLSCOPOLAMINE BROMIDE
     Indication: Product used for unknown indication
     Dosage: 10 MG TAKE ONE TABLET THREE TIMES DAILY
     Route: 048
  10. Sandoz Co-amoxyclav [Concomitant]
     Indication: Product used for unknown indication
     Dosage: 1000 MG TAKE ONE TABLET THREE TIMES DAILY
     Route: 048

REACTIONS (1)
  - Neoplasm malignant [Unknown]
